FAERS Safety Report 16732268 (Version 1)
Quarter: 2019Q3

REPORT INFORMATION
  Report Type: Spontaneous
  Country: US (occurrence: US)
  Receive Date: 20190822
  Receipt Date: 20190822
  Transmission Date: 20191005
  Serious: Yes (Other)
  Sender: FDA-Public Use
  Company Number: US-SAGENT PHARMACEUTICALS-2019SAG001620

PATIENT

DRUGS (13)
  1. VALPROIC ACID. [Suspect]
     Active Substance: VALPROIC ACID
     Indication: FEBRILE CONVULSION
  2. CARBAMAZEPINE. [Suspect]
     Active Substance: CARBAMAZEPINE
     Indication: FEBRILE CONVULSION
  3. RUFINAMIDE [Suspect]
     Active Substance: RUFINAMIDE
     Indication: FEBRILE CONVULSION
  4. VALPROATE SEMISODIUM [Suspect]
     Active Substance: DIVALPROEX SODIUM
     Indication: FEBRILE CONVULSION
     Dosage: UNK
  5. PHENOBARBITAL. [Suspect]
     Active Substance: PHENOBARBITAL
     Indication: FEBRILE CONVULSION
  6. TRIHEXYPHENIDYL [Suspect]
     Active Substance: TRIHEXYPHENIDYL
     Indication: FEBRILE CONVULSION
  7. LEVETIRACETAM. [Suspect]
     Active Substance: LEVETIRACETAM
     Indication: FEBRILE CONVULSION
  8. MIDAZOLAM [Suspect]
     Active Substance: MIDAZOLAM HYDROCHLORIDE
     Indication: FEBRILE CONVULSION
  9. VALPROATE SEMISODIUM [Suspect]
     Active Substance: DIVALPROEX SODIUM
     Dosage: SLOW TAPER, UNK
  10. PENTOBARBITAL. [Suspect]
     Active Substance: PENTOBARBITAL
     Indication: FEBRILE CONVULSION
  11. CLOBAZAM. [Suspect]
     Active Substance: CLOBAZAM
     Indication: FEBRILE CONVULSION
  12. LORAZEPAM. [Suspect]
     Active Substance: LORAZEPAM
     Indication: FEBRILE CONVULSION
  13. TOPIRAMATE. [Suspect]
     Active Substance: TOPIRAMATE
     Indication: FEBRILE CONVULSION

REACTIONS (1)
  - Fanconi syndrome [Recovering/Resolving]
